FAERS Safety Report 9740109 (Version 3)
Quarter: 2014Q1

REPORT INFORMATION
  Report Type: Report from Study
  Country: ES (occurrence: ES)
  Receive Date: 20131209
  Receipt Date: 20140217
  Transmission Date: 20141002
  Serious: Yes (Hospitalization)
  Sender: FDA-Public Use
  Company Number: ES-AMGEN-ESPCT2013085756

PATIENT
  Age: 45 Year
  Sex: Female

DRUGS (2)
  1. PANITUMUMAB [Suspect]
     Indication: HEAD AND NECK CANCER
     Dosage: 6 MG/KG, Q2WK
     Route: 042
     Dates: start: 20130715, end: 20131105
  2. PACLITAXEL [Concomitant]
     Dosage: 80 MG/M2, QWK
     Route: 042
     Dates: start: 20130715

REACTIONS (1)
  - Mucosal inflammation [Recovered/Resolved]
